FAERS Safety Report 8872746 (Version 2)
Quarter: 2013Q1

REPORT INFORMATION
  Report Type: Report from Study
  Country: DE (occurrence: DE)
  Receive Date: 20121030
  Receipt Date: 20130108
  Transmission Date: 20140127
  Serious: Yes (Death)
  Sender: FDA-Public Use
  Company Number: DE-ROCHE-1149641

PATIENT
  Sex: Female
  Weight: 61 kg

DRUGS (1)
  1. TRASTUZUMAB [Suspect]
     Indication: BREAST CANCER
     Dosage: LAST DOSE  PRIOR TO SAE: 17/OCT/2011
     Route: 065

REACTIONS (1)
  - Death [Fatal]
